FAERS Safety Report 13245418 (Version 10)
Quarter: 2017Q2

REPORT INFORMATION
  Report Type: Report from Study
  Country: AR (occurrence: AR)
  Receive Date: 20170217
  Receipt Date: 20170414
  Transmission Date: 20170830
  Serious: Yes (Hospitalization)
  Sender: FDA-Public Use
  Company Number: AR-ROCHE-1891394

PATIENT
  Age: 31 Year
  Sex: Female
  Weight: 87.5 kg

DRUGS (83)
  1. FUROSEMIDE. [Concomitant]
     Active Substance: FUROSEMIDE
     Route: 042
     Dates: start: 20170118, end: 20170119
  2. FUROSEMIDE. [Concomitant]
     Active Substance: FUROSEMIDE
     Route: 042
     Dates: start: 20170122, end: 20170125
  3. FUROSEMIDE. [Concomitant]
     Active Substance: FUROSEMIDE
     Route: 042
     Dates: start: 20170219, end: 20170222
  4. PREDNISONE. [Concomitant]
     Active Substance: PREDNISONE
     Indication: LUPUS NEPHRITIS
     Route: 048
     Dates: start: 20161227, end: 20170117
  5. SODIUM CHLORIDE. [Concomitant]
     Active Substance: SODIUM CHLORIDE
     Route: 042
     Dates: start: 20170117, end: 20170117
  6. OMEPRAZOLE. [Concomitant]
     Active Substance: OMEPRAZOLE
     Route: 048
     Dates: start: 20170209, end: 20170216
  7. CALCIUM CARBONATE. [Concomitant]
     Active Substance: CALCIUM CARBONATE
     Indication: LUPUS NEPHRITIS
     Route: 048
     Dates: start: 20170118, end: 20170119
  8. DAPTOMYCIN. [Concomitant]
     Active Substance: DAPTOMYCIN
     Indication: LUPUS NEPHRITIS
     Route: 042
     Dates: start: 20170224, end: 20170303
  9. METOCLOPRAMIDE. [Concomitant]
     Active Substance: METOCLOPRAMIDE
     Indication: LUPUS NEPHRITIS
     Route: 042
     Dates: start: 20170222, end: 20170222
  10. ENALAPRIL [Concomitant]
     Active Substance: ENALAPRIL
     Indication: LUPUS NEPHRITIS
     Route: 048
     Dates: start: 2010, end: 20170119
  11. FUROSEMIDE. [Concomitant]
     Active Substance: FUROSEMIDE
     Route: 042
     Dates: start: 20170212, end: 20170219
  12. ZOLPIDEM [Concomitant]
     Active Substance: ZOLPIDEM\ZOLPIDEM TARTRATE
     Route: 048
     Dates: start: 20160102
  13. OMEPRAZOLE. [Concomitant]
     Active Substance: OMEPRAZOLE
     Route: 048
     Dates: start: 20170118, end: 20170208
  14. ATORVASTATIN [Concomitant]
     Active Substance: ATORVASTATIN
     Route: 048
     Dates: start: 20170126
  15. CEFEPIME [Concomitant]
     Active Substance: CEFEPIME HYDROCHLORIDE
     Indication: LUPUS NEPHRITIS
     Route: 042
     Dates: start: 20170211
  16. FLUCONAZOL [Concomitant]
     Active Substance: FLUCONAZOLE
     Indication: LUPUS NEPHRITIS
     Route: 042
     Dates: start: 20170224, end: 20170301
  17. PLACEBO [Suspect]
     Active Substance: UNSPECIFIED INGREDIENT
     Route: 042
     Dates: start: 20170124, end: 20170125
  18. FUROSEMIDE. [Concomitant]
     Active Substance: FUROSEMIDE
     Indication: LUPUS NEPHRITIS
     Route: 048
     Dates: start: 20161012, end: 20170112
  19. FUROSEMIDE. [Concomitant]
     Active Substance: FUROSEMIDE
     Route: 048
     Dates: start: 20170113, end: 20170121
  20. FUROSEMIDE. [Concomitant]
     Active Substance: FUROSEMIDE
     Route: 042
     Dates: start: 20170221, end: 20170226
  21. ALLOPURINOL. [Concomitant]
     Active Substance: ALLOPURINOL
     Indication: LUPUS NEPHRITIS
     Route: 048
     Dates: start: 20170119, end: 20170125
  22. CODEINE [Concomitant]
     Active Substance: CODEINE
     Route: 048
     Dates: start: 20170210
  23. DIPHENHYDRAMINE. [Concomitant]
     Active Substance: DIPHENHYDRAMINE
     Route: 042
     Dates: start: 20170214, end: 20170214
  24. DIPHENHYDRAMINE. [Concomitant]
     Active Substance: DIPHENHYDRAMINE
     Route: 048
     Dates: start: 20170211, end: 20170211
  25. SOLU-MEDROL [Concomitant]
     Active Substance: METHYLPREDNISOLONE SODIUM SUCCINATE
     Indication: LUPUS NEPHRITIS
     Dosage: 3 PULSES
     Route: 042
     Dates: start: 20170221, end: 20170223
  26. PLACEBO [Suspect]
     Active Substance: UNSPECIFIED INGREDIENT
     Route: 042
     Dates: start: 20170221, end: 20170223
  27. ACETAMINOPHEN. [Concomitant]
     Active Substance: ACETAMINOPHEN
     Route: 048
     Dates: start: 20170210
  28. PANTOPRAZOLE [Concomitant]
     Active Substance: PANTOPRAZOLE
     Route: 048
     Dates: start: 20161115, end: 20170118
  29. FUROSEMIDE. [Concomitant]
     Active Substance: FUROSEMIDE
     Route: 042
     Dates: start: 20170221, end: 20170226
  30. FUROSEMIDE. [Concomitant]
     Active Substance: FUROSEMIDE
     Route: 042
     Dates: start: 20170227
  31. ATORVASTATIN [Concomitant]
     Active Substance: ATORVASTATIN
     Indication: LUPUS NEPHRITIS
     Route: 048
     Dates: start: 20170118, end: 20170118
  32. ISONIAZID. [Concomitant]
     Active Substance: ISONIAZID
     Route: 048
     Dates: start: 20170124
  33. SODIUM HEPARIN [Concomitant]
     Active Substance: HEPARIN SODIUM
     Route: 058
     Dates: start: 20170118, end: 20170125
  34. IVERMECTINE [Concomitant]
     Route: 048
     Dates: start: 20170123, end: 20170123
  35. CALCIPARINE [Concomitant]
     Active Substance: HEPARIN CALCIUM
     Route: 058
     Dates: start: 20170224
  36. MORPHINE [Concomitant]
     Active Substance: MORPHINE
     Route: 042
     Dates: start: 20170209, end: 20170209
  37. TEICOPLANIN [Concomitant]
     Active Substance: TEICOPLANIN
     Route: 042
     Dates: start: 20170213
  38. SILVER SULFADIAZINE. [Concomitant]
     Active Substance: SILVER SULFADIAZINE
     Route: 061
     Dates: start: 20170213
  39. PLACEBO [Suspect]
     Active Substance: UNSPECIFIED INGREDIENT
     Indication: LUPUS NEPHRITIS
     Dosage: DATE OF MOST RECENT DOSE ON 26/DEC/2016 AT 10:00
     Route: 042
     Dates: start: 20161212
  40. FUROSEMIDE. [Concomitant]
     Active Substance: FUROSEMIDE
     Route: 042
     Dates: start: 20170211, end: 20170212
  41. FUROSEMIDE. [Concomitant]
     Active Substance: FUROSEMIDE
     Route: 042
     Dates: start: 20170218, end: 20170218
  42. PREDNISONE. [Concomitant]
     Active Substance: PREDNISONE
     Route: 048
     Dates: start: 20170118
  43. ALBUMIN [Concomitant]
     Active Substance: ALBUMIN HUMAN
     Indication: LUPUS NEPHRITIS
     Route: 042
     Dates: start: 20170122, end: 20170125
  44. CLOBETASOL [Concomitant]
     Active Substance: CLOBETASOL
     Route: 061
     Dates: start: 20170209, end: 20170222
  45. CEFEPIME [Concomitant]
     Active Substance: CEFEPIME HYDROCHLORIDE
     Route: 042
     Dates: start: 20170228
  46. RANITIDINE. [Concomitant]
     Active Substance: RANITIDINE
     Route: 048
     Dates: start: 20170217
  47. POTASSIUM CHLORIDE. [Concomitant]
     Active Substance: POTASSIUM CHLORIDE
     Indication: LUPUS NEPHRITIS
     Route: 048
     Dates: start: 20170215, end: 20170219
  48. MEROPENEM. [Concomitant]
     Active Substance: MEROPENEM
     Indication: LUPUS NEPHRITIS
     Route: 042
     Dates: start: 20170228
  49. ENALAPRIL [Concomitant]
     Active Substance: ENALAPRIL
     Route: 048
     Dates: start: 20170120, end: 20170208
  50. FUROSEMIDE. [Concomitant]
     Active Substance: FUROSEMIDE
     Route: 048
     Dates: start: 20170126
  51. FUROSEMIDE. [Concomitant]
     Active Substance: FUROSEMIDE
     Route: 042
     Dates: start: 20170224
  52. FUROSEMIDE. [Concomitant]
     Active Substance: FUROSEMIDE
     Route: 042
     Dates: start: 20170211, end: 20170211
  53. AZITHROMYCIN ANHYDROUS. [Concomitant]
     Active Substance: AZITHROMYCIN ANHYDROUS
     Route: 048
     Dates: start: 20170109, end: 20170113
  54. VANCOMICINA [Concomitant]
     Active Substance: VANCOMYCIN
     Route: 042
     Dates: start: 20170120, end: 20170128
  55. CALCIUM CARBONATE. [Concomitant]
     Active Substance: CALCIUM CARBONATE
     Route: 048
     Dates: start: 20170119
  56. ALBUMIN [Concomitant]
     Active Substance: ALBUMIN HUMAN
     Route: 042
     Dates: start: 20170210, end: 20170222
  57. TEICOPLANIN [Concomitant]
     Active Substance: TEICOPLANIN
     Route: 042
     Dates: start: 20170210, end: 20170213
  58. SULFAMETHOXAZOLE/TRIMETHOPRIM [Concomitant]
     Active Substance: SULFAMETHOXAZOLE\TRIMETHOPRIM
     Route: 048
     Dates: start: 20170209, end: 20170222
  59. LORAZEPAM. [Concomitant]
     Active Substance: LORAZEPAM
     Route: 048
     Dates: start: 20170209
  60. MAGNESIUM CITRATE. [Concomitant]
     Active Substance: MAGNESIUM CITRATE
     Indication: LUPUS NEPHRITIS
     Route: 048
     Dates: start: 20170113
  61. MYCOPHENOLATE MOFETIL. [Suspect]
     Active Substance: MYCOPHENOLATE MOFETIL
     Indication: LUPUS NEPHRITIS
     Dosage: MOST RECENT DOSE PRIOR TO SAE: 2000 MG ON 18/JAN/2017
     Route: 048
     Dates: start: 20161101
  62. FUROSEMIDE. [Concomitant]
     Active Substance: FUROSEMIDE
     Route: 042
     Dates: start: 20170213, end: 20170213
  63. CALCIPARINE [Concomitant]
     Active Substance: HEPARIN CALCIUM
     Indication: LUPUS NEPHRITIS
     Route: 058
     Dates: start: 20170208, end: 20170210
  64. AMLODIPINE [Concomitant]
     Active Substance: AMLODIPINE BESYLATE
     Indication: LUPUS NEPHRITIS
     Route: 048
     Dates: start: 20170209
  65. POTASSIUM CHLORIDE. [Concomitant]
     Active Substance: POTASSIUM CHLORIDE
     Route: 048
     Dates: start: 20170220
  66. LEUCOVORINE [Concomitant]
     Active Substance: LEUCOVORIN
     Indication: LUPUS NEPHRITIS
     Route: 042
     Dates: start: 20170223, end: 20170302
  67. ACETAMINOPHEN. [Concomitant]
     Active Substance: ACETAMINOPHEN
     Route: 048
     Dates: start: 20161213, end: 20170126
  68. ENALAPRIL [Concomitant]
     Active Substance: ENALAPRIL
     Route: 048
     Dates: start: 20170209, end: 20170209
  69. FUROSEMIDE. [Concomitant]
     Active Substance: FUROSEMIDE
     Route: 048
     Dates: start: 20170120, end: 20170210
  70. FUROSEMIDE. [Concomitant]
     Active Substance: FUROSEMIDE
     Route: 042
     Dates: start: 20170218, end: 20170218
  71. FUROSEMIDE. [Concomitant]
     Active Substance: FUROSEMIDE
     Route: 042
     Dates: start: 20170210, end: 20170210
  72. FUROSEMIDE. [Concomitant]
     Active Substance: FUROSEMIDE
     Route: 042
     Dates: start: 20170212, end: 20170212
  73. FUROSEMIDE. [Concomitant]
     Active Substance: FUROSEMIDE
     Route: 042
     Dates: start: 20170219, end: 20170220
  74. FUROSEMIDE. [Concomitant]
     Active Substance: FUROSEMIDE
     Route: 042
     Dates: start: 20170213, end: 20170217
  75. ALPRAZOLAM. [Concomitant]
     Active Substance: ALPRAZOLAM
     Route: 048
     Dates: start: 20161226
  76. ATORVASTATIN [Concomitant]
     Active Substance: ATORVASTATIN
     Route: 048
     Dates: start: 20170119, end: 20170125
  77. CODEINE [Concomitant]
     Active Substance: CODEINE
     Route: 048
     Dates: start: 20170209, end: 20170301
  78. DIPHENHYDRAMINE. [Concomitant]
     Active Substance: DIPHENHYDRAMINE
     Route: 048
     Dates: start: 20170215, end: 20170215
  79. CEFEPIME [Concomitant]
     Active Substance: CEFEPIME HYDROCHLORIDE
     Route: 042
     Dates: start: 20170210, end: 20170213
  80. FILGRASTIM [Concomitant]
     Active Substance: FILGRASTIM
     Indication: NEUTROPENIA
     Route: 058
     Dates: start: 20170221
  81. PENTOXIFILINA [Concomitant]
     Active Substance: PENTOXIFYLLINE
     Indication: LUPUS NEPHRITIS
     Route: 048
     Dates: start: 20170219
  82. METOCLOPRAMIDE. [Concomitant]
     Active Substance: METOCLOPRAMIDE
     Route: 042
     Dates: start: 20170225
  83. PLACEBO [Suspect]
     Active Substance: UNSPECIFIED INGREDIENT
     Indication: LUPUS NEPHRITIS
     Dosage: DATE OF MOST RECENT DOSE ON 26/DEC/2016 AT 10:30.
     Route: 042
     Dates: start: 20161212

REACTIONS (1)
  - Varicella [Recovered/Resolved]

NARRATIVE: CASE EVENT DATE: 20170208
